FAERS Safety Report 4762521-1 (Version None)
Quarter: 2005Q3

REPORT INFORMATION
  Report Type: 
  Country: None (occurrence: None)
  Receive Date: 20050902
  Receipt Date: 20050707
  Transmission Date: 20060218
  Serious: Yes (Other)
  Sender: FDA-Public Use
  Company Number: 2005S1000996

PATIENT
  Age: 46 Year
  Sex: Male
  Weight: 84.369 kg

DRUGS (5)
  1. FENTANYL [Suspect]
     Indication: ARTHRALGIA
     Dosage: 50 MCG/HR; QOD; TDER
     Route: 062
     Dates: start: 20050228, end: 20050301
  2. OXYCODONE FLUTICASONE/PROPIONATE/SALMETEROL XINAFOATE [Concomitant]
  3. OMEPRAZOLE [Concomitant]
  4. FLUTICASONE PROPIONATE [Concomitant]
  5. ALBUTEROL [Concomitant]

REACTIONS (5)
  - DIZZINESS [None]
  - DRUG EFFECT INCREASED [None]
  - HEART RATE INCREASED [None]
  - RESPIRATORY RATE DECREASED [None]
  - SEDATION [None]
